FAERS Safety Report 13931136 (Version 2)
Quarter: 2017Q4

REPORT INFORMATION
  Report Type: Report from Study
  Country: US (occurrence: US)
  Receive Date: 20170902
  Receipt Date: 20171213
  Transmission Date: 20180320
  Serious: No
  Sender: FDA-Public Use
  Company Number: PHEH2017US027772

PATIENT
  Sex: Female
  Weight: 60.78 kg

DRUGS (1)
  1. COSENTYX [Suspect]
     Active Substance: SECUKINUMAB
     Indication: ANKYLOSING SPONDYLITIS
     Dosage: 300 MG, QMO
     Route: 058
     Dates: start: 201701

REACTIONS (3)
  - Drug ineffective [Unknown]
  - Nasopharyngitis [Unknown]
  - Influenza like illness [Unknown]
